FAERS Safety Report 12433291 (Version 4)
Quarter: 2017Q1

REPORT INFORMATION
  Report Type: Report from Study
  Country: BR (occurrence: BR)
  Receive Date: 20160603
  Receipt Date: 20170119
  Transmission Date: 20170428
  Serious: Yes (Hospitalization, Other)
  Sender: FDA-Public Use
  Company Number: BR-ALEXION PHARMACEUTICALS INC-A201604013

PATIENT
  Age: 19 Year
  Sex: Female

DRUGS (4)
  1. SOLIRIS [Suspect]
     Active Substance: ECULIZUMAB
     Dosage: 1200 MG, Q2W
     Route: 042
     Dates: start: 20160608
  2. ATENOLOL. [Concomitant]
     Active Substance: ATENOLOL
     Indication: HYPERTENSION
     Dosage: UNK
     Route: 065
  3. SOLIRIS [Suspect]
     Active Substance: ECULIZUMAB
     Dosage: 1200 MG, Q2W
     Route: 042
     Dates: start: 20140410, end: 20160421
  4. SOLIRIS [Suspect]
     Active Substance: ECULIZUMAB
     Indication: HAEMOLYTIC URAEMIC SYNDROME
     Dosage: 900 MG, UNK (FOR 4 WEEKS)
     Route: 042
     Dates: start: 20140313, end: 20140403

REACTIONS (14)
  - Contusion [Not Recovered/Not Resolved]
  - Arthritis [Unknown]
  - Epistaxis [Recovering/Resolving]
  - Polyarthritis [Not Recovered/Not Resolved]
  - Spider vein [Not Recovered/Not Resolved]
  - Joint swelling [Not Recovered/Not Resolved]
  - Psoriasis [Not Recovered/Not Resolved]
  - Blood lactate dehydrogenase decreased [Unknown]
  - Arthralgia [Recovered/Resolved]
  - Pyuria [Recovered/Resolved]
  - Skin lesion [Recovered/Resolved]
  - Peripheral swelling [Not Recovered/Not Resolved]
  - Vasculitis [Not Recovered/Not Resolved]
  - Lymphocytic infiltration [Not Recovered/Not Resolved]

NARRATIVE: CASE EVENT DATE: 20160530
